FAERS Safety Report 17925925 (Version 6)
Quarter: 2022Q2

REPORT INFORMATION
  Report Type: Spontaneous
  Country: FR (occurrence: FR)
  Receive Date: 20200622
  Receipt Date: 20220622
  Transmission Date: 20220721
  Serious: Yes (Life-Threatening, Hospitalization, Other)
  Sender: FDA-Public Use
  Company Number: FR-002147023-NVSC2020FR157708

PATIENT
  Age: 57 Year
  Sex: Male

DRUGS (7)
  1. EVEROLIMUS [Interacting]
     Active Substance: EVEROLIMUS
     Indication: Liver transplant
     Dosage: UNK
  2. EVEROLIMUS [Interacting]
     Active Substance: EVEROLIMUS
     Indication: Immunosuppressant drug therapy
  3. APIXABAN [Interacting]
     Active Substance: APIXABAN
     Indication: Congestive cardiomyopathy
     Dosage: 5 MG, PER DAY; DOSAGE OF APIXABAN WAS REDUCED TO LIMIT INTERACTION
  4. APIXABAN [Interacting]
     Active Substance: APIXABAN
     Indication: Ventricular fibrillation
     Dosage: UNK, DOSAGE OF APIXABAN WAS REDUCED TO LIMIT INTERACTION
  5. PANTOPRAZOLE [Suspect]
     Active Substance: PANTOPRAZOLE
     Indication: Shock haemorrhagic
     Dosage: 80 MILLIGRAM, QD (CONTINUOUS INFUSION)
     Route: 042
  6. EPINEPHRINE [Suspect]
     Active Substance: EPINEPHRINE
     Indication: Shock haemorrhagic
     Dosage: UNK
  7. PANTOPRAZOLE [Concomitant]
     Active Substance: PANTOPRAZOLE
     Indication: Shock haemorrhagic
     Dosage: 80 MILLIGRAM, QD

REACTIONS (6)
  - Shock haemorrhagic [Not Recovered/Not Resolved]
  - Gastroduodenal haemorrhage [Recovered/Resolved]
  - Drug interaction [Unknown]
  - Drug ineffective [Unknown]
  - Cardiac arrest [Unknown]
  - Off label use [Unknown]
